FAERS Safety Report 17520290 (Version 1)
Quarter: 2020Q1

REPORT INFORMATION
  Report Type: Spontaneous
  Country: GR (occurrence: GR)
  Receive Date: 20200309
  Receipt Date: 20200309
  Transmission Date: 20200409
  Serious: Yes (Hospitalization, Other)
  Sender: FDA-Public Use
  Company Number: NVSC2020GR065858

PATIENT
  Age: 62 Year
  Sex: Female

DRUGS (3)
  1. IMATINIB. [Suspect]
     Active Substance: IMATINIB MESYLATE
     Indication: PRODUCT USED FOR UNKNOWN INDICATION
     Dosage: UNK
     Route: 065
     Dates: start: 20191016
  2. MOXIFLOXACIN. [Suspect]
     Active Substance: MOXIFLOXACIN
     Indication: PRODUCT USED FOR UNKNOWN INDICATION
     Dosage: 400 MG
     Route: 065
  3. OLARTAN PLUS [Concomitant]
     Indication: HYPERTENSION
     Dosage: 40/12.5 MG, BID (1X1)
     Route: 065

REACTIONS (12)
  - Serum ferritin decreased [Unknown]
  - Platelet count decreased [Unknown]
  - Pyrexia [Recovering/Resolving]
  - Haemoglobin decreased [Recovering/Resolving]
  - Hypoaesthesia [Recovering/Resolving]
  - Ischaemic stroke [Unknown]
  - Facial paralysis [Not Recovered/Not Resolved]
  - Peripheral nerve palsy [Not Recovered/Not Resolved]
  - Dysarthria [Recovering/Resolving]
  - CSF protein increased [Unknown]
  - Haemophagocytic lymphohistiocytosis [Recovering/Resolving]
  - CSF glucose decreased [Unknown]
